FAERS Safety Report 8076403-3 (Version None)
Quarter: 2012Q1

REPORT INFORMATION
  Report Type: 
  Country: None (occurrence: None)
  Receive Date: 20120127
  Receipt Date: 20120127
  Transmission Date: 20120608
  Serious: Yes (Other)
  Sender: FDA-Public Use
  Company Number: None

PATIENT
  Age: 27 Year
  Sex: Female
  Weight: 77.11 kg

DRUGS (1)
  1. MIRENA [Suspect]
     Indication: CONTRACEPTION
     Dosage: FACTORY SPECIFIC
     Route: 015
     Dates: start: 20110615, end: 20120126

REACTIONS (13)
  - MUSCLE SPASMS [None]
  - MENORRHAGIA [None]
  - ILL-DEFINED DISORDER [None]
  - HAEMORRHOIDS [None]
  - FLATULENCE [None]
  - ACNE [None]
  - MIGRAINE [None]
  - ANAEMIA [None]
  - LIBIDO DECREASED [None]
  - CONSTIPATION [None]
  - MOOD SWINGS [None]
  - NAUSEA [None]
  - GALLBLADDER DISORDER [None]
